FAERS Safety Report 20164434 (Version 1)
Quarter: 2021Q4

REPORT INFORMATION
  Report Type: Report from Study
  Country: MX (occurrence: MX)
  Receive Date: 20211209
  Receipt Date: 20211209
  Transmission Date: 20220303
  Serious: Yes (Other)
  Sender: FDA-Public Use
  Company Number: MX-NOVARTISPH-NVSC2021MX276376

PATIENT
  Sex: Male

DRUGS (1)
  1. IMATINIB [Suspect]
     Active Substance: IMATINIB
     Indication: Chronic myeloid leukaemia
     Dosage: 4 DOSAGE FORM, QD, (CAPSULE)
     Route: 048

REACTIONS (8)
  - Prostatic disorder [Unknown]
  - Blood glucose abnormal [Unknown]
  - Prostatic specific antigen abnormal [Unknown]
  - Intentional product misuse [Not Recovered/Not Resolved]
  - Adverse drug reaction [Unknown]
  - Blood glucose increased [Unknown]
  - Illness [Unknown]
  - Product availability issue [Not Recovered/Not Resolved]
